FAERS Safety Report 6731923-6 (Version None)
Quarter: 2010Q2

REPORT INFORMATION
  Report Type: 
  Country: None (occurrence: None)
  Receive Date: 20100519
  Receipt Date: 20100510
  Transmission Date: 20101027
  Serious: Yes (Hospitalization)
  Sender: FDA-Public Use
  Company Number: FR-ASTRAZENECA-2010SE21570

PATIENT
  Age: 963 Month
  Sex: Male

DRUGS (7)
  1. NEXIUM [Suspect]
     Route: 048
     Dates: start: 20090901, end: 20100322
  2. CRESTOR [Suspect]
     Route: 048
     Dates: start: 20100101, end: 20100322
  3. TRIATEC [Suspect]
     Route: 065
     Dates: start: 20100101, end: 20100201
  4. TRIATEC [Suspect]
     Dosage: GENERIC DRUG.
     Route: 065
     Dates: start: 20100201, end: 20100320
  5. TRIATEC [Suspect]
     Route: 065
     Dates: start: 20100320, end: 20100322
  6. PREVISCAN [Suspect]
     Indication: ARRHYTHMIA SUPRAVENTRICULAR
     Route: 065
     Dates: start: 20091001, end: 20100320
  7. CORDARONE [Suspect]
     Route: 065
     Dates: start: 20091001, end: 20100322

REACTIONS (1)
  - VASCULAR PURPURA [None]
